FAERS Safety Report 21669909 (Version 1)
Quarter: 2022Q4

REPORT INFORMATION
  Report Type: Report from Study
  Country: US (occurrence: US)
  Receive Date: 20221201
  Receipt Date: 20221201
  Transmission Date: 20230113
  Serious: Yes (Hospitalization)
  Sender: FDA-Public Use
  Company Number: US-MYLANLABS-2022M1133575

PATIENT

DRUGS (7)
  1. GEMCITABINE [Suspect]
     Active Substance: GEMCITABINE
     Indication: Neoplasm malignant
     Dosage: UNK, STARTED ON 28-DAY CYCLES OF GEMCITABINE ON DAYS 1, 8, 15
     Route: 065
  2. GEMCITABINE [Suspect]
     Active Substance: GEMCITABINE
     Dosage: 1000 MILLIGRAM/SQ. METER, CYCLE(ON DAYS 1, 8, 15 OF A 28 DAY TREATMENT CYCLE...
     Route: 065
  3. ALISERTIB [Suspect]
     Active Substance: ALISERTIB
     Indication: Neoplasm malignant
     Dosage: UNK, TWICE DAILY ON DAYS 1-3, 8-10, AND 15-17
     Route: 048
  4. ALISERTIB [Suspect]
     Active Substance: ALISERTIB
     Dosage: 20 MILLIGRAM, BID
     Route: 048
  5. ALISERTIB [Suspect]
     Active Substance: ALISERTIB
     Dosage: 30 MILLIGRAM, BID (DL2)
     Route: 048
  6. ALISERTIB [Suspect]
     Active Substance: ALISERTIB
     Dosage: 50 MILLIGRAM, BID ((DL4); 3 + 3 DESIGN)
     Route: 048
  7. ALISERTIB [Suspect]
     Active Substance: ALISERTIB
     Dosage: 40 MILLIGRAM, CYCLE (40 MG TWICE A DAY ON DAYS 1-3, 8-10, AND 15-17...
     Route: 048

REACTIONS (2)
  - Urinary tract infection [Unknown]
  - Septic shock [Unknown]
